FAERS Safety Report 5356184-4 (Version None)
Quarter: 2007Q2

REPORT INFORMATION
  Report Type: 
  Country: None (occurrence: None)
  Receive Date: 20070613
  Receipt Date: 20070604
  Transmission Date: 20071010
  Serious: Yes (Life-Threatening)
  Sender: FDA-Public Use
  Company Number: US-GENENTECH-242593

PATIENT
  Sex: Female
  Weight: 85.6 kg

DRUGS (5)
  1. RITUXIMAB [Suspect]
     Indication: RHEUMATOID ARTHRITIS
     Dosage: 1000 MG, DAYS 1+15
     Route: 042
     Dates: start: 20060914
  2. TETANUS TOXOID [Concomitant]
     Indication: DRUG USE FOR UNKNOWN INDICATION
     Dosage: 1 MG, UNK
     Route: 030
  3. PNEUMOCOCCAL POLYSACCHARIDE VACCINE [Concomitant]
     Indication: DRUG USE FOR UNKNOWN INDICATION
     Dosage: 0.5 ML, UNK
     Route: 030
  4. KEYHOLE LIMPET HEMOCYANIN [Concomitant]
     Indication: DRUG USE FOR UNKNOWN INDICATION
     Dosage: 1 MG, UNK
     Route: 058
  5. CANDIDA ALBICANS SKIN TEST [Concomitant]
     Indication: DRUG USE FOR UNKNOWN INDICATION
     Route: 023

REACTIONS (1)
  - INFUSION RELATED REACTION [None]
